FAERS Safety Report 15482998 (Version 1)
Quarter: 2018Q4

REPORT INFORMATION
  Report Type: Spontaneous
  Country: US (occurrence: US)
  Receive Date: 20181003
  Receipt Date: 20181003
  Transmission Date: 20190205
  Serious: No
  Sender: FDA-Public Use
  Company Number: None

PATIENT
  Age: 82 Year
  Sex: Male
  Weight: 96.75 kg

DRUGS (9)
  1. BERNARD JENSEN BLACK CHERRY CONCENTRATE [Concomitant]
  2. L-THYROXINE [Concomitant]
     Active Substance: LEVOTHYROXINE
  3. ERGOCALCIFEROL. [Concomitant]
     Active Substance: ERGOCALCIFEROL
  4. LOSARTAN. [Concomitant]
     Active Substance: LOSARTAN
  5. HYDROCHLOROTHIAZIDE. [Concomitant]
     Active Substance: HYDROCHLOROTHIAZIDE
  6. FISH OIL [Concomitant]
     Active Substance: FISH OIL
  7. EZETIMIBE. [Suspect]
     Active Substance: EZETIMIBE
     Indication: LOW DENSITY LIPOPROTEIN INCREASED
     Dosage: ?          QUANTITY:1 TABLET(S);?
     Route: 048
     Dates: start: 20180511, end: 20180811
  8. NIFEDIPINE. [Concomitant]
     Active Substance: NIFEDIPINE
  9. GLUCOSAMINE/CHON [Concomitant]

REACTIONS (4)
  - Rash erythematous [None]
  - Dizziness [None]
  - Muscle spasms [None]
  - Rash [None]

NARRATIVE: CASE EVENT DATE: 20180807
